FAERS Safety Report 7272000-8 (Version None)
Quarter: 2011Q1

REPORT INFORMATION
  Report Type: 
  Country: None (occurrence: None)
  Receive Date: 20110127
  Receipt Date: 20110111
  Transmission Date: 20110831
  Serious: Yes (Death)
  Sender: FDA-Public Use
  Company Number: APP201100010

PATIENT
  Age: 25 Year
  Sex: Male

DRUGS (15)
  1. EFAVIRENZ [Concomitant]
  2. VALGANCICLOVIR HCL [Concomitant]
  3. MOXIFLOXACIN HCL [Suspect]
     Indication: TUBERCULOSIS
  4. DARUNAVIR (DARUNAVIR) [Concomitant]
  5. AMIKACIN [Concomitant]
  6. CLOFAZIMINE (CLOFAZIMINE) [Concomitant]
  7. ONDANSETRON [Suspect]
     Indication: PRODUCT USED FOR UNKNOWN INDICATION
  8. FLUCONAZOLE [Suspect]
     Indication: ORAL CANDIDIASIS
  9. HEPARIN LOW MOLECULAR WEIGHT [Concomitant]
  10. LINEZOLID [Concomitant]
  11. TRUVADA [Concomitant]
  12. PROTHIONAMIDE (PROTIONAMIDE) [Concomitant]
  13. PYRAZINAMIDE [Concomitant]
  14. RITONAVIR [Suspect]
     Indication: HIV INFECTION
  15. CYCLOSERINE [Concomitant]

REACTIONS (7)
  - ELECTROCARDIOGRAM QT PROLONGED [None]
  - WHITE BLOOD CELL COUNT DECREASED [None]
  - NEUTROPHIL COUNT DECREASED [None]
  - ARRHYTHMIA [None]
  - BLOOD POTASSIUM DECREASED [None]
  - TUBERCULOSIS [None]
  - SUDDEN DEATH [None]
